FAERS Safety Report 7392254-7 (Version None)
Quarter: 2011Q2

REPORT INFORMATION
  Report Type: 
  Country: None (occurrence: None)
  Receive Date: 20110404
  Receipt Date: 20110325
  Transmission Date: 20111010
  Serious: Yes (Hospitalization)
  Sender: FDA-Public Use
  Company Number: US-MERCK-1103USA03450

PATIENT
  Age: 62 Year
  Sex: Female

DRUGS (8)
  1. EMEND [Suspect]
     Route: 048
     Dates: start: 20110313, end: 20110313
  2. COMPAZINE [Concomitant]
     Dosage: 5-10 MG EVERY 6 HOURS AS NEEDED.
     Route: 065
  3. DOXORUBICIN [Concomitant]
     Route: 065
  4. DECADRON [Concomitant]
     Route: 048
  5. LORAZEPAM [Concomitant]
     Route: 065
  6. EMEND [Suspect]
     Route: 048
     Dates: start: 20110312, end: 20110312
  7. CYCLOPHOSPHAMIDE [Concomitant]
     Route: 065
  8. EMEND [Suspect]
     Indication: NAUSEA
     Route: 048
     Dates: start: 20110311, end: 20110311

REACTIONS (4)
  - PYREXIA [None]
  - ABDOMINAL PAIN [None]
  - NAUSEA [None]
  - LIVER FUNCTION TEST ABNORMAL [None]
